FAERS Safety Report 7973955-6 (Version None)
Quarter: 2011Q4

REPORT INFORMATION
  Report Type: 
  Country: None (occurrence: None)
  Receive Date: 20111213
  Receipt Date: 20111208
  Transmission Date: 20120403
  Serious: Yes (Hospitalization)
  Sender: FDA-Public Use
  Company Number: US-GLAXOSMITHKLINE-A0809140A

PATIENT
  Sex: Female

DRUGS (2)
  1. OXYCONTIN [Concomitant]
  2. WELLBUTRIN SR [Suspect]
     Indication: PRODUCT USED FOR UNKNOWN INDICATION
     Dosage: 150MG UNKNOWN
     Dates: start: 20090217

REACTIONS (6)
  - STAPHYLOCOCCAL INFECTION [None]
  - TOE AMPUTATION [None]
  - DIABETES MELLITUS [None]
  - FOOT FRACTURE [None]
  - MENTAL DISORDER [None]
  - NEUROPATHY PERIPHERAL [None]
